FAERS Safety Report 18139150 (Version 2)
Quarter: 2020Q3

REPORT INFORMATION
  Report Type: Spontaneous
  Country: DK (occurrence: DK)
  Receive Date: 20200812
  Receipt Date: 20200824
  Transmission Date: 20201103
  Serious: Yes (Other)
  Sender: FDA-Public Use
  Company Number: DK-TEVA-2020-DK-1813662

PATIENT
  Age: 59 Year
  Sex: Male

DRUGS (1)
  1. CLOPIDOGREL [Suspect]
     Active Substance: CLOPIDOGREL BISULFATE
     Route: 065

REACTIONS (7)
  - Product substitution issue [Unknown]
  - Product physical issue [Unknown]
  - Headache [Recovered/Resolved]
  - Balance disorder [Recovered/Resolved]
  - Injury [Not Recovered/Not Resolved]
  - Limb discomfort [Unknown]
  - Brain hypoxia [Unknown]

NARRATIVE: CASE EVENT DATE: 20200810
